FAERS Safety Report 12267769 (Version 1)
Quarter: 2016Q2

REPORT INFORMATION
  Report Type: Spontaneous
  Country: US (occurrence: US)
  Receive Date: 20160414
  Receipt Date: 20160414
  Transmission Date: 20160815
  Serious: No
  Sender: FDA-Public Use
  Company Number: US-BAYER-2016-070835

PATIENT
  Age: 91 Year
  Sex: Female
  Weight: 72.11 kg

DRUGS (11)
  1. MIRALAX [Suspect]
     Active Substance: POLYETHYLENE GLYCOL 3350
     Indication: CONSTIPATION
     Dosage: 1 DF, QD
     Route: 048
     Dates: start: 20160405
  2. VITAMIN D [Concomitant]
     Active Substance: CHOLECALCIFEROL
  3. LEVOTHYROXINE. [Concomitant]
     Active Substance: LEVOTHYROXINE
  4. TIMOLOL. [Concomitant]
     Active Substance: TIMOLOL
  5. CALCIUM [Concomitant]
     Active Substance: CALCIUM
  6. RENU [SODIUM CHLORIDE,SODIUM EDETATE] [Concomitant]
  7. LUMIGAN [Concomitant]
     Active Substance: BIMATOPROST
  8. ONE A DAY WOMEN^S [Concomitant]
     Active Substance: MINERALS\VITAMINS
     Dosage: UNK
  9. PRAVASTATIN [Concomitant]
     Active Substance: PRAVASTATIN\PRAVASTATIN SODIUM
  10. FOCUS GEL [Concomitant]
  11. ZINC [Concomitant]
     Active Substance: ZINC\ZINC CHLORIDE

REACTIONS (2)
  - Musculoskeletal chest pain [None]
  - Product use issue [None]

NARRATIVE: CASE EVENT DATE: 20160405
